FAERS Safety Report 5940701-7 (Version None)
Quarter: 2008Q4

REPORT INFORMATION
  Report Type: 
  Country: None (occurrence: None)
  Receive Date: 20081104
  Receipt Date: 20081030
  Transmission Date: 20090506
  Serious: Yes (Other)
  Sender: FDA-Public Use
  Company Number: US-WYE-H05735508

PATIENT
  Sex: Male
  Weight: 86.26 kg

DRUGS (9)
  1. PRISTIQ [Suspect]
     Indication: MAJOR DEPRESSION
     Route: 048
     Dates: start: 20080716, end: 20080806
  2. CLONIDINE [Concomitant]
     Indication: POST-TRAUMATIC STRESS DISORDER
     Dosage: 0.1 MG 2 @ HS
     Route: 048
     Dates: start: 20080326
  3. CYMBALTA [Interacting]
     Indication: DEPRESSION
     Route: 048
     Dates: start: 20060901
  4. CYMBALTA [Interacting]
     Indication: ANXIETY
  5. DIAZEPAM [Concomitant]
     Indication: POST-TRAUMATIC STRESS DISORDER
     Route: 048
     Dates: start: 20061001
  6. DIAZEPAM [Concomitant]
     Indication: ANXIETY
  7. DIAZEPAM [Concomitant]
     Indication: MUSCLE SPASMS
  8. LAMICTAL [Concomitant]
     Indication: DEPRESSION
     Route: 048
     Dates: start: 20071214
  9. ABILIFY [Concomitant]
     Indication: DEPRESSION
     Route: 048
     Dates: start: 20080428

REACTIONS (7)
  - CONDITION AGGRAVATED [None]
  - DEPRESSION [None]
  - DRUG INTERACTION [None]
  - INSOMNIA [None]
  - PSYCHOMOTOR HYPERACTIVITY [None]
  - STARING [None]
  - SUICIDAL IDEATION [None]
